FAERS Safety Report 7768875-6 (Version None)
Quarter: 2011Q3

REPORT INFORMATION
  Report Type: 
  Country: None (occurrence: None)
  Receive Date: 20110922
  Receipt Date: 20110503
  Transmission Date: 20111222
  Serious: No
  Sender: FDA-Public Use
  Company Number: US-ASTRAZENECA-2011SE11643

PATIENT
  Age: 29 Year
  Sex: Female

DRUGS (2)
  1. SEROQUEL XR [Suspect]
     Route: 048
  2. SEROQUEL XR [Suspect]
     Route: 048

REACTIONS (6)
  - CLUMSINESS [None]
  - FALL [None]
  - DISORIENTATION [None]
  - TREMOR [None]
  - FEELING ABNORMAL [None]
  - BALANCE DISORDER [None]
